FAERS Safety Report 19847774 (Version 2)
Quarter: 2021Q4

REPORT INFORMATION
  Report Type: Spontaneous
  Country: US (occurrence: US)
  Receive Date: 20210917
  Receipt Date: 20211028
  Transmission Date: 20220303
  Serious: Yes (Hospitalization)
  Sender: FDA-Public Use
  Company Number: 2021A723000

PATIENT
  Age: 70 Year
  Sex: Female
  Weight: 89.4 kg

DRUGS (1)
  1. BYDUREON [Suspect]
     Active Substance: EXENATIDE
     Indication: Diabetes mellitus
     Route: 058

REACTIONS (7)
  - COVID-19 [Unknown]
  - Dyspnoea [Unknown]
  - Total lung capacity abnormal [Unknown]
  - Lung disorder [Unknown]
  - Device use issue [Unknown]
  - Needle issue [Unknown]
  - Device delivery system issue [Unknown]

NARRATIVE: CASE EVENT DATE: 20210101
